FAERS Safety Report 21133647 (Version 2)
Quarter: 2022Q3

REPORT INFORMATION
  Report Type: Report from Study
  Country: BE (occurrence: BE)
  Receive Date: 20220726
  Receipt Date: 20220728
  Transmission Date: 20221026
  Serious: Yes (Other)
  Sender: FDA-Public Use
  Company Number: BE-JNJFOC-20220713124

PATIENT
  Sex: Female

DRUGS (1)
  1. BORTEZOMIB [Suspect]
     Active Substance: BORTEZOMIB
     Indication: Product used for unknown indication
     Dosage: 2.46 MILLIGRAM
     Route: 058

REACTIONS (4)
  - Blood pressure decreased [Unknown]
  - Nausea [Unknown]
  - Syncope [Unknown]
  - Malaise [Unknown]
